FAERS Safety Report 25651793 (Version 1)
Quarter: 2025Q3

REPORT INFORMATION
  Report Type: Spontaneous
  Country: US (occurrence: US)
  Receive Date: 20250806
  Receipt Date: 20250806
  Transmission Date: 20251021
  Serious: No
  Sender: EVOKE PHARMA
  Company Number: US-EVOKE PHARMA, INC.-2025EVO000035

PATIENT

DRUGS (6)
  1. GIMOTI [Suspect]
     Active Substance: METOCLOPRAMIDE HYDROCHLORIDE
     Indication: Impaired gastric emptying
     Route: 045
     Dates: start: 202501, end: 2025
  2. GIMOTI [Suspect]
     Active Substance: METOCLOPRAMIDE HYDROCHLORIDE
     Route: 045
     Dates: start: 202504, end: 2025
  3. OZEMPIC [Concomitant]
     Active Substance: SEMAGLUTIDE
     Indication: Type 2 diabetes mellitus
     Route: 065
  4. ATORVASTATIN [Concomitant]
     Active Substance: ATORVASTATIN
     Indication: Type 2 diabetes mellitus
  5. FENOFIBRATE [Concomitant]
     Active Substance: FENOFIBRATE
     Indication: Type 2 diabetes mellitus
  6. OMEPRAZOLE [Concomitant]
     Active Substance: OMEPRAZOLE
     Indication: Hiatus hernia
     Dosage: UNK, QD

REACTIONS (3)
  - Nasal discomfort [Unknown]
  - Rhinitis [Unknown]
  - Nasal crusting [Unknown]

NARRATIVE: CASE EVENT DATE: 20250401
